FAERS Safety Report 17618678 (Version 1)
Quarter: 2020Q2

REPORT INFORMATION
  Report Type: Spontaneous
  Country: DE (occurrence: DE)
  Receive Date: 20200402
  Receipt Date: 20200402
  Transmission Date: 20200713
  Serious: Yes (Hospitalization, Other)
  Sender: FDA-Public Use
  Company Number: DE-BAYER-2020-054342

PATIENT
  Age: 34 Year
  Sex: Female
  Weight: 57.7 kg

DRUGS (2)
  1. MIRENA [Suspect]
     Active Substance: LEVONORGESTREL
     Indication: CONTRACEPTION
     Dosage: 20 ?G PER DAY CONTINUOUSLY
     Route: 015
     Dates: start: 201803
  2. CITALOPRAM [Concomitant]
     Active Substance: CITALOPRAM HYDROBROMIDE
     Indication: DEPRESSED MOOD
     Dosage: 20 MG, QD
     Route: 048
     Dates: start: 201907

REACTIONS (8)
  - Initial insomnia [Recovered/Resolved]
  - Depression [Recovered/Resolved]
  - Middle insomnia [Recovered/Resolved]
  - Negative thoughts [Recovered/Resolved]
  - Suicide attempt [Unknown]
  - Suicidal ideation [Recovered/Resolved]
  - Obsessive rumination [Recovered/Resolved]
  - Restlessness [Recovered/Resolved]

NARRATIVE: CASE EVENT DATE: 201803
